FAERS Safety Report 7699635-2 (Version None)
Quarter: 2011Q3

REPORT INFORMATION
  Report Type: 
  Country: None (occurrence: None)
  Receive Date: 20110822
  Receipt Date: 20110810
  Transmission Date: 20111222
  Serious: No
  Sender: FDA-Public Use
  Company Number: US-BIOGENIDEC-2011BI020401

PATIENT
  Age: 48 Year
  Sex: Female

DRUGS (2)
  1. AVONEX [Concomitant]
     Indication: MULTIPLE SCLEROSIS
     Route: 030
     Dates: start: 19970801
  2. TYSABRI [Suspect]
     Indication: MULTIPLE SCLEROSIS
     Route: 042
     Dates: start: 20100908

REACTIONS (7)
  - URINARY TRACT INFECTION [None]
  - HEADACHE [None]
  - VOMITING [None]
  - BODY TEMPERATURE DECREASED [None]
  - CONTUSION [None]
  - FALL [None]
  - RETCHING [None]
